FAERS Safety Report 6525407-8 (Version None)
Quarter: 2009Q4

REPORT INFORMATION
  Report Type: 
  Country: None (occurrence: None)
  Receive Date: 20091214
  Receipt Date: 20090413
  Transmission Date: 20100525
  Serious: Yes (Other)
  Sender: FDA-Public Use
  Company Number: 627098

PATIENT
  Age: 55 Year
  Sex: Male
  Weight: 98 kg

DRUGS (11)
  1. PEG-INTERFERON A-2A (RO 25-8310) (PEG-INTERFERON ALFA 2A) [Suspect]
     Indication: HEPATITIS C
     Dosage: 180 UG 1 PER WEEK SUBCUTANEOUS
     Route: 058
  2. RIBAVIRIN [Suspect]
     Indication: HEPATITIS C
     Dosage: 600 MG 2 PER DAY ORAL
     Route: 048
  3. INFERGEN [Suspect]
     Indication: HEPATITIS C
     Dosage: 9 UG DAILY SUBCUTANEOUS
     Route: 058
  4. AMITRIPTYLINE HYDROCHLORIDE [Concomitant]
  5. MIRTAZAPINE [Concomitant]
  6. HYDROCHLOROTHIAZIDE [Concomitant]
  7. LISINOPRIL [Concomitant]
  8. OMEPRAZOLE [Concomitant]
  9. HYDROCODONE/PARACETAMOL (HYDROCODONE/PARACETAMOL) [Concomitant]
  10. ALBUTEROL/IPRATROPIUM (IPRATROPIUM BROMIDE/SALBUTAMOL) [Concomitant]
  11. PROMETHEZINE HCL [Concomitant]

REACTIONS (3)
  - NO THERAPEUTIC RESPONSE [None]
  - TRANSAMINASES INCREASED [None]
  - UPPER RESPIRATORY TRACT INFECTION [None]
